FAERS Safety Report 15462546 (Version 2)
Quarter: 2018Q4

REPORT INFORMATION
  Report Type: Spontaneous
  Country: US (occurrence: US)
  Receive Date: 20181004
  Receipt Date: 20181015
  Transmission Date: 20190204
  Serious: Yes (Death, Hospitalization, Other)
  Sender: FDA-Public Use
  Company Number: US-BEH-2018095230

PATIENT
  Age: 85 Year
  Sex: Female
  Weight: 52.15 kg

DRUGS (21)
  1. CLONIDINE. [Concomitant]
     Active Substance: CLONIDINE
  2. ZOFRAN [Concomitant]
     Active Substance: ONDANSETRON HYDROCHLORIDE
  3. SODIUM CHLORIDE. [Concomitant]
     Active Substance: SODIUM CHLORIDE
  4. AMLODIPINE BESYLATE. [Concomitant]
     Active Substance: AMLODIPINE BESYLATE
  5. HAEGARDA [Suspect]
     Active Substance: HUMAN C1-ESTERASE INHIBITOR
     Dosage: UNK UNK, UNK
     Route: 058
  6. LACTULOSE. [Concomitant]
     Active Substance: LACTULOSE
  7. CINRYZE [Concomitant]
     Active Substance: HUMAN C1-ESTERASE INHIBITOR
  8. SPIRONOLACTONE AND HYDROCHLOROTHIAZIDE [Concomitant]
     Active Substance: HYDROCHLOROTHIAZIDE\SPIRONOLACTONE
  9. FIRAZYR [Concomitant]
     Active Substance: ICATIBANT ACETATE
  10. CITALOPRAM [Concomitant]
     Active Substance: CITALOPRAM HYDROBROMIDE
  11. EPINEPHRINE. [Concomitant]
     Active Substance: EPINEPHRINE
  12. HEPARIN [Concomitant]
     Active Substance: HEPARIN SODIUM
  13. HAEGARDA [Suspect]
     Active Substance: HUMAN C1-ESTERASE INHIBITOR
     Indication: HEREDITARY ANGIOEDEMA
     Dosage: UNK UNK, UNK
     Route: 058
  14. STERILE WATER [Concomitant]
     Active Substance: WATER
  15. HYDROMORPHONE [Concomitant]
     Active Substance: HYDROMORPHONE
  16. LOSARTAN. [Concomitant]
     Active Substance: LOSARTAN
  17. HAEGARDA [Suspect]
     Active Substance: HUMAN C1-ESTERASE INHIBITOR
     Indication: PROPHYLAXIS
     Dosage: 4000 IU, EVERY 3-4 DAYS
     Route: 058
     Dates: start: 20180227
  18. EPINEPHRINE. [Concomitant]
     Active Substance: EPINEPHRINE
  19. WELCHOL [Concomitant]
     Active Substance: COLESEVELAM HYDROCHLORIDE
  20. TRAZODONE [Concomitant]
     Active Substance: TRAZODONE HYDROCHLORIDE
  21. CARDIZEM [Concomitant]
     Active Substance: DILTIAZEM HYDROCHLORIDE

REACTIONS (3)
  - Cerebrovascular accident [Unknown]
  - Death [Fatal]
  - Cerebrovascular accident [Unknown]

NARRATIVE: CASE EVENT DATE: 201808
